FAERS Safety Report 7549360-3 (Version None)
Quarter: 2011Q2

REPORT INFORMATION
  Report Type: 
  Country: None (occurrence: None)
  Receive Date: 20110615
  Receipt Date: 20040115
  Transmission Date: 20111010
  Serious: Yes (Other)
  Sender: FDA-Public Use
  Company Number: PHHO2003VE15010

PATIENT
  Age: 53 Year
  Sex: Female

DRUGS (5)
  1. MONOMAX [Concomitant]
  2. DILTIAZEM [Concomitant]
  3. DIOVAN [Suspect]
     Dosage: 80 MG, QD
     Route: 048
  4. DIOVAN [Suspect]
     Dosage: 40 MG / DAY
     Route: 048
  5. VASTAREL [Concomitant]

REACTIONS (1)
  - BRADYCARDIA [None]
